FAERS Safety Report 7374065-1 (Version None)
Quarter: 2011Q1

REPORT INFORMATION
  Report Type: 
  Country: None (occurrence: None)
  Receive Date: 20110325
  Receipt Date: 20110317
  Transmission Date: 20110831
  Serious: Yes (Hospitalization)
  Sender: FDA-Public Use
  Company Number: PL-ASTELLAS-2011EU001313

PATIENT
  Sex: Female
  Weight: 80 kg

DRUGS (2)
  1. VASILIP [Concomitant]
     Indication: HYPERCHOLESTEROLAEMIA
     Dosage: 10 MG, UID/QD
     Route: 048
     Dates: start: 20100501
  2. BLINDED SOLIFENACIN [Suspect]
     Indication: HYPERTONIC BLADDER
     Dosage: 10 MG, UID/QD
     Route: 048
     Dates: start: 20110130, end: 20110309

REACTIONS (2)
  - PYREXIA [None]
  - DRY MOUTH [None]
